FAERS Safety Report 17736747 (Version 1)
Quarter: 2020Q2

REPORT INFORMATION
  Report Type: Spontaneous
  Country: IT (occurrence: IT)
  Receive Date: 20200501
  Receipt Date: 20200501
  Transmission Date: 20200714
  Serious: Yes (Other)
  Sender: FDA-Public Use
  Company Number: IT-AUROBINDO-AUR-APL-2020-021474

PATIENT
  Age: 87 Year
  Sex: Female

DRUGS (2)
  1. QUETIAPINE. [Suspect]
     Active Substance: QUETIAPINE
     Indication: DEMENTIA ALZHEIMER^S TYPE
  2. QUETIAPINE. [Suspect]
     Active Substance: QUETIAPINE
     Indication: SENILE DEMENTIA
     Dosage: UNK
     Route: 048

REACTIONS (4)
  - Agitation [Unknown]
  - Drug ineffective [Unknown]
  - Aggression [Unknown]
  - Insomnia [Unknown]
